FAERS Safety Report 7670129-3 (Version None)
Quarter: 2011Q3

REPORT INFORMATION
  Report Type: 
  Country: None (occurrence: None)
  Receive Date: 20110808
  Receipt Date: 20110729
  Transmission Date: 20111222
  Serious: Yes (Hospitalization, Other)
  Sender: FDA-Public Use
  Company Number: US-ASTRAZENECA-2011SE45761

PATIENT
  Age: 59 Year
  Sex: Female

DRUGS (1)
  1. NEXIUM [Suspect]
     Route: 048
     Dates: start: 20050101

REACTIONS (7)
  - LARGE INTESTINAL ULCER [None]
  - SPINAL FRACTURE [None]
  - MALAISE [None]
  - FALL [None]
  - STOMACH MASS [None]
  - DRUG DOSE OMISSION [None]
  - LOWER RESPIRATORY TRACT INFECTION [None]
